FAERS Safety Report 16112662 (Version 1)
Quarter: 2019Q1

REPORT INFORMATION
  Report Type: Report from Study
  Country: US (occurrence: US)
  Receive Date: 20190325
  Receipt Date: 20190325
  Transmission Date: 20190418
  Serious: Yes (Hospitalization, Other)
  Sender: FDA-Public Use
  Company Number: US-GILEAD-2019-0395175

PATIENT
  Age: 71 Year
  Sex: Male
  Weight: 93.6 kg

DRUGS (22)
  1. NAPROXEN. [Concomitant]
     Active Substance: NAPROXEN
  2. ONDANSETRON [Concomitant]
     Active Substance: ONDANSETRON
  3. IDELALISIB [Suspect]
     Active Substance: IDELALISIB
     Indication: B-CELL LYMPHOMA
     Dosage: 150 MG, BID
     Route: 048
     Dates: start: 20160301, end: 2017
  4. LITHIUM. [Suspect]
     Active Substance: LITHIUM
     Indication: PRODUCT USED FOR UNKNOWN INDICATION
     Route: 065
  5. XANAX [Concomitant]
     Active Substance: ALPRAZOLAM
     Dosage: NOT PROVIDED, TABLET BY MOUTH.
     Dates: start: 201703, end: 201806
  6. MULTIVITAMIN + MINERAL [Concomitant]
     Active Substance: MINERALS\VITAMINS
     Dosage: NOT PROVIDED, ONE TABLET BY MOUTH DAILY.
  7. TRINTELLIX [Concomitant]
     Active Substance: VORTIOXETINE HYDROBROMIDE
     Dosage: 20MG BY MOUTH EVERY DAY.
  8. PERCOCET [Concomitant]
     Active Substance: ACETAMINOPHEN\OXYCODONE HYDROCHLORIDE
  9. REXULTI [Concomitant]
     Active Substance: BREXPIPRAZOLE
     Dosage: 1.5MG BY MOUTH DAILY.
  10. VALIUM [Concomitant]
     Active Substance: DIAZEPAM
     Dosage: 20MG BY MOUTH DAILY.
     Dates: start: 201806
  11. COZAAR [Concomitant]
     Active Substance: LOSARTAN POTASSIUM
  12. IDELALISIB [Suspect]
     Active Substance: IDELALISIB
     Dosage: 150 MG, QD
     Route: 048
     Dates: start: 2017
  13. GAVISCON FORTE [Concomitant]
     Dosage: NOT PROVIDED, LIQUID BY MOUTH AS NEEDED OTC.
  14. CALCIUM [Concomitant]
     Active Substance: CALCIUM
     Dosage: NOT PROVIDED, 1 TABLET BY MOUTH DAILY.
  15. MELATONIN [Concomitant]
     Active Substance: MELATONIN
     Dosage: NOT PROVIDED, ONE TABLET BY MOUTH EVERY NIGHT AT BEDTIME.
  16. BENADRYL 24 D [Concomitant]
     Active Substance: LORATADINE\PSEUDOEPHEDRINE SULFATE
     Dosage: 25MG, ONE TABLET BY MOUTH EVERY NIGHT AT BEDTIME.
  17. WELLBUTRIN [Concomitant]
     Active Substance: BUPROPION HYDROCHLORIDE
  18. PRILOSEC [Concomitant]
     Active Substance: OMEPRAZOLE MAGNESIUM
     Dosage: 40MG BY MOUTH DAILY.
     Dates: start: 20190107
  19. VITAMIN D [Concomitant]
     Active Substance: CHOLECALCIFEROL
     Dosage: NOT PROVIDED, TABLET BY MOUTH DAILY.
  20. MUPIROCIN. [Concomitant]
     Active Substance: MUPIROCIN
  21. DOXYCYCLINE. [Concomitant]
     Active Substance: DOXYCYCLINE
  22. BACTRIM [Concomitant]
     Active Substance: SULFAMETHOXAZOLE\TRIMETHOPRIM

REACTIONS (17)
  - Malignant melanoma [Unknown]
  - Off label use [Not Recovered/Not Resolved]
  - Fatigue [Recovering/Resolving]
  - Dysstasia [Not Recovered/Not Resolved]
  - Loss of consciousness [Recovered/Resolved]
  - Spinal operation [Recovering/Resolving]
  - Diarrhoea [Recovered/Resolved]
  - Self esteem decreased [Not Recovered/Not Resolved]
  - Anxiety [Not Recovered/Not Resolved]
  - Squamous cell carcinoma of head and neck [Unknown]
  - Oesophagitis [Unknown]
  - Lumbar spinal stenosis [Not Recovered/Not Resolved]
  - Depression [Not Recovered/Not Resolved]
  - Necrosis [Unknown]
  - Contusion [Unknown]
  - Gastrooesophageal reflux disease [Recovered/Resolved]
  - Inguinal hernia [Unknown]

NARRATIVE: CASE EVENT DATE: 2016
